FAERS Safety Report 4310722-9 (Version None)
Quarter: 2004Q1

REPORT INFORMATION
  Report Type: 
  Country: None (occurrence: None)
  Receive Date: 20040302
  Receipt Date: 20040219
  Transmission Date: 20041129
  Serious: Yes (Hospitalization)
  Sender: FDA-Public Use
  Company Number: UK067157

PATIENT
  Age: 56 Year
  Sex: Male
  Weight: 100 kg

DRUGS (14)
  1. ARANESP [Suspect]
     Indication: DIALYSIS
     Dosage: 50 MCG, 1 IN 1 WEEKS, IV
     Route: 042
     Dates: start: 20030919
  2. ALUMINIUM CHLORHYDROXIDE-COMPLEX [Concomitant]
  3. PRAMIPEXOLE [Concomitant]
  4. ASPIRIN [Concomitant]
  5. OMEPRAZOLE [Concomitant]
  6. ATORVASTATIN [Concomitant]
  7. CANDESARTAN CILEXETIL [Concomitant]
  8. METOCLOPRAMIDE [Concomitant]
  9. CETIRIZINE HCL [Concomitant]
  10. FUROSEMIDE [Concomitant]
  11. BUPRENORPHINE HYDROCHLORIDE [Concomitant]
  12. PARACETAMOL [Concomitant]
  13. TRAZODONE HCL [Concomitant]
  14. ISOSORBIDE DINITRATE [Concomitant]

REACTIONS (3)
  - POST PROCEDURAL COMPLICATION [None]
  - TOE AMPUTATION [None]
  - WOUND DEHISCENCE [None]
